FAERS Safety Report 8596425-3 (Version None)
Quarter: 2012Q3

REPORT INFORMATION
  Report Type: 
  Country: None (occurrence: None)
  Receive Date: 20120815
  Receipt Date: 20110627
  Transmission Date: 20120928
  Serious: Yes (Other)
  Sender: FDA-Public Use
  Company Number: US-BAYER-2010-003210

PATIENT
  Age: 15 Year
  Sex: Female
  Weight: 110 kg

DRUGS (13)
  1. YASMIN [Suspect]
  2. LORTAB [Concomitant]
     Indication: NAUSEA
  3. YAZ [Suspect]
     Indication: PREMENSTRUAL SYNDROME
  4. SULFAMETHOXAZOLE [Concomitant]
     Dosage: UNK UNK, QD
     Route: 048
  5. DROSPIRENONE AND ETHINYL ESTRADIOL [Suspect]
     Indication: ACNE
     Dosage: UNK
     Dates: start: 20080101, end: 20090101
  6. DROSPIRENONE AND ETHINYL ESTRADIOL [Suspect]
  7. HYDROXYZINE [Concomitant]
     Indication: HYPERSENSITIVITY
     Dosage: 25 MG, BID
     Route: 048
  8. YAZ [Suspect]
     Indication: ACNE
     Dosage: UNK
     Dates: start: 20080101, end: 20090101
  9. YASMIN [Suspect]
     Indication: ACNE
     Dosage: UNK
     Dates: start: 20080101, end: 20090101
  10. RANITIDINE [Concomitant]
     Dosage: 150 MG, QD
     Route: 048
  11. YAZ [Suspect]
  12. YASMIN [Suspect]
     Indication: PREMENSTRUAL SYNDROME
  13. DROSPIRENONE AND ETHINYL ESTRADIOL [Suspect]
     Indication: PREMENSTRUAL SYNDROME

REACTIONS (8)
  - CHOLECYSTITIS CHRONIC [None]
  - ABDOMINAL PAIN [None]
  - GALLBLADDER CHOLESTEROLOSIS [None]
  - BENIGN NEOPLASM [None]
  - MUSCLE SPASMS [None]
  - DEPRESSION [None]
  - CHOLELITHIASIS [None]
  - NAUSEA [None]
